FAERS Safety Report 24587306 (Version 2)
Quarter: 2024Q4

REPORT INFORMATION
  Report Type: Spontaneous
  Country: CA (occurrence: CA)
  Receive Date: 20241107
  Receipt Date: 20241127
  Transmission Date: 20250115
  Serious: Yes (Death, Life-Threatening, Hospitalization, Other)
  Sender: HIKMA
  Company Number: CA-MLMSERVICE-20241023-PI234772-00145-1

PATIENT

DRUGS (2)
  1. FENTANYL [Suspect]
     Active Substance: FENTANYL
     Indication: Product used for unknown indication
     Dosage: UNKNOWN
     Route: 042
  2. METHAMPHETAMINE [Suspect]
     Active Substance: METHAMPHETAMINE
     Indication: Product used for unknown indication
     Dosage: UNKNOWN
     Route: 042

REACTIONS (8)
  - Myocardiac abscess [Fatal]
  - Toxicity to various agents [Fatal]
  - Myocardial rupture [Fatal]
  - Pericardial haemorrhage [Fatal]
  - Myocardial infarction [Fatal]
  - Cardiac arrest [Fatal]
  - Staphylococcal infection [Fatal]
  - Drug abuse [Fatal]
